FAERS Safety Report 5329272-6 (Version None)
Quarter: 2007Q2

REPORT INFORMATION
  Report Type: 
  Country: None (occurrence: None)
  Receive Date: 20070518
  Receipt Date: 20070511
  Transmission Date: 20071010
  Serious: Yes (Other)
  Sender: FDA-Public Use
  Company Number: US-PFIZER INC-2007037758

PATIENT
  Sex: Male

DRUGS (3)
  1. ZOLOFT [Suspect]
  2. CARBAMIDE PEROXIDE [Interacting]
  3. CHLORHEXIDINE GLUCONATE [Interacting]

REACTIONS (6)
  - ANXIETY [None]
  - DIZZINESS [None]
  - DRUG INTERACTION [None]
  - HEART RATE INCREASED [None]
  - MUSCULAR WEAKNESS [None]
  - PHARYNGEAL OEDEMA [None]
